FAERS Safety Report 6822348-3 (Version None)
Quarter: 2010Q3

REPORT INFORMATION
  Report Type: 
  Country: None (occurrence: None)
  Receive Date: 20100708
  Receipt Date: 20100624
  Transmission Date: 20110219
  Serious: Yes (Hospitalization, Other)
  Sender: FDA-Public Use
  Company Number: PHHY2010US25767

PATIENT
  Sex: Female
  Weight: 92.5 kg

DRUGS (12)
  1. EXJADE [Suspect]
     Indication: IRON METABOLISM DISORDER
     Dosage: 1750 MG, QD
     Route: 048
     Dates: start: 20100331
  2. PREDNISONE [Concomitant]
  3. DIFLUCAN [Concomitant]
  4. DAPSONE [Concomitant]
  5. ACYCLOVIR [Concomitant]
  6. AMLODIPINE W/HYDROCHLOROTHIAZIDE [Concomitant]
  7. FLOVENT [Concomitant]
  8. PROCRIT [Concomitant]
  9. SODIUM BICARBONATE [Concomitant]
  10. NEXIUM [Concomitant]
  11. CALCITRIOL [Concomitant]
  12. NEUPOGEN [Concomitant]

REACTIONS (3)
  - EAR INFECTION [None]
  - STEM CELL TRANSPLANT [None]
  - TYMPANIC MEMBRANE PERFORATION [None]
